FAERS Safety Report 8390047-5 (Version None)
Quarter: 2012Q2

REPORT INFORMATION
  Report Type: 
  Country: None (occurrence: None)
  Receive Date: 20120529
  Receipt Date: 20120514
  Transmission Date: 20120825
  Serious: Yes (Other)
  Sender: FDA-Public Use
  Company Number: FR-JNJFOC-20120306243

PATIENT
  Sex: Female
  Weight: 65 kg

DRUGS (6)
  1. SOTALOL HCL [Concomitant]
     Indication: CARDIAC DISORDER
     Route: 048
  2. RISPERDAL [Suspect]
     Indication: PSYCHOTIC DISORDER
     Route: 048
  3. TERCIAN [Concomitant]
     Indication: ANXIETY
     Route: 048
     Dates: start: 20120215, end: 20120409
  4. SULFARLEM [Concomitant]
     Indication: APTYALISM
     Route: 048
     Dates: start: 20120223, end: 20120409
  5. RISPERDAL [Suspect]
     Route: 048
     Dates: start: 20120101
  6. TERCIAN [Concomitant]
     Indication: SEDATION
     Route: 048
     Dates: start: 20120215, end: 20120409

REACTIONS (3)
  - GALACTORRHOEA [None]
  - BREAST DISCOMFORT [None]
  - HYPERPROLACTINAEMIA [None]
